FAERS Safety Report 17258427 (Version 2)
Quarter: 2020Q1

REPORT INFORMATION
  Report Type: Spontaneous
  Country: US (occurrence: US)
  Receive Date: 20200110
  Receipt Date: 20200129
  Transmission Date: 20200409
  Serious: Yes (Other)
  Sender: FDA-Public Use
  Company Number: US-ASTRAZENECA-2020SE01722

PATIENT
  Age: 958 Month
  Sex: Male
  Weight: 73.5 kg

DRUGS (22)
  1. ALBUTEROL. [Concomitant]
     Active Substance: ALBUTEROL
     Dosage: FOUR TIMES A DAY
     Route: 055
  2. MICONAZOLE. [Concomitant]
     Active Substance: MICONAZOLE
  3. NISTATIN CREAM [Concomitant]
  4. TRIAMCINOLONE CREAM [Concomitant]
     Active Substance: TRIAMCINOLONE
  5. LOSARTAN. [Concomitant]
     Active Substance: LOSARTAN
  6. MAGNEUIUM OXIDE [Concomitant]
  7. BYDUREON BCISE [Suspect]
     Active Substance: EXENATIDE
     Route: 065
  8. VITAMIN B COMPLEX [Concomitant]
     Active Substance: CYANOCOBALAMIN\DEXPANTHENOL\NIACINAMIDE\PYRIDOXINE HYDROCHLORIDE\RIBOFLAVIN 5^-PHOSPHATE SODIUM\THIAMINE HYDROCHLORIDE\VITAMIN B COMPLEX
  9. GLIMEPRIDE [Concomitant]
     Active Substance: GLIMEPIRIDE
  10. VENTOLIN HFA [Concomitant]
     Active Substance: ALBUTEROL SULFATE
     Indication: RESPIRATORY DISORDER
  11. INCRUSE ELLIPTA [Concomitant]
     Active Substance: UMECLIDINIUM BROMIDE
     Indication: CHRONIC OBSTRUCTIVE PULMONARY DISEASE
     Dates: start: 2017
  12. METOPROLOL SUCCINATE XL [Concomitant]
     Active Substance: METOPROLOL SUCCINATE
     Indication: HYPERTENSION
  13. DULOXETINE. [Concomitant]
     Active Substance: DULOXETINE
  14. LEVOTHYROIXINE [Concomitant]
  15. CALCIUM [Concomitant]
     Active Substance: CALCIUM
  16. GENERIC ZETIA [Concomitant]
  17. MIRALAX [Concomitant]
     Active Substance: POLYETHYLENE GLYCOL 3350
  18. FLORIFY PROBIOTIC [Concomitant]
  19. MUPIROCIN  CREAM [Concomitant]
     Active Substance: MUPIROCIN
  20. SYMBICORT [Suspect]
     Active Substance: BUDESONIDE\FORMOTEROL FUMARATE DIHYDRATE
     Indication: CHRONIC OBSTRUCTIVE PULMONARY DISEASE
     Dosage: 160/4.5 MCG TWO PUFFS TWICE A DAY
     Route: 055
     Dates: start: 2013
  21. MULTIVITAMIN [Concomitant]
     Active Substance: VITAMINS
  22. FISH OIL [Concomitant]
     Active Substance: FISH OIL

REACTIONS (9)
  - Renal failure [Not Recovered/Not Resolved]
  - Injection site mass [Recovered/Resolved]
  - Drug delivery system malfunction [Unknown]
  - Incorrect dose administered by device [Unknown]
  - Device leakage [Unknown]
  - Injection site haemorrhage [Recovered/Resolved]
  - Blood glucose increased [Not Recovered/Not Resolved]
  - Wrong technique in product usage process [Unknown]
  - Abdominal distension [Recovered/Resolved]

NARRATIVE: CASE EVENT DATE: 201911
